FAERS Safety Report 11669982 (Version 10)
Quarter: 2020Q1

REPORT INFORMATION
  Report Type: Spontaneous
  Country: US (occurrence: US)
  Receive Date: 20151027
  Receipt Date: 20200224
  Transmission Date: 20200409
  Serious: Yes (Hospitalization, Other)
  Sender: FDA-Public Use
  Company Number: US-PFIZER INC-2015259943

PATIENT
  Age: 73 Year
  Sex: Female
  Weight: 90 kg

DRUGS (28)
  1. POTASSIUM CHLORIDE. [Concomitant]
     Active Substance: POTASSIUM CHLORIDE
     Dosage: UNK (ONE HALF TABLET ON EVEN DAYS)
  2. MONTELUKAST SODIUM. [Concomitant]
     Active Substance: MONTELUKAST SODIUM
     Indication: HYPERSENSITIVITY
     Dosage: 10 MG, UNK
  3. FLUTICASONE PROPIONATE. [Concomitant]
     Active Substance: FLUTICASONE PROPIONATE
     Indication: HYPERSENSITIVITY
     Dosage: 50 UG, UNK
  4. DILTIAZEM. [Concomitant]
     Active Substance: DILTIAZEM
     Indication: HEART RATE ABNORMAL
     Dosage: 360 MG, DAILY (A.M.)
  5. WARFARIN [Concomitant]
     Active Substance: WARFARIN
     Dosage: UNK (4 OR 5 MG DEPENDING ON INR AND PROTHROMBIN)
  6. LOSARTAN. [Concomitant]
     Active Substance: LOSARTAN
     Indication: HYPERTENSION
     Dosage: 100 MG, DAILY
  7. OXYGEN. [Concomitant]
     Active Substance: OXYGEN
     Dosage: 2 L, DAILY (24 HRS)
  8. REVATIO [Suspect]
     Active Substance: SILDENAFIL CITRATE
     Indication: HYPOXIA
     Dosage: 60 MG (20 MG X 3 TABLETS), 3X/DAY
     Route: 048
  9. FUROSEMIDE. [Concomitant]
     Active Substance: FUROSEMIDE
     Dosage: UNK (1 DAILY EXCEPT MONDAY AND TUESDAY I TAKE 2.)
  10. ADVAIR HFA [Concomitant]
     Active Substance: FLUTICASONE PROPIONATE\SALMETEROL XINAFOATE
     Dosage: UNK, 2X/DAY
     Route: 055
  11. ROSUVASTATIN. [Concomitant]
     Active Substance: ROSUVASTATIN
     Indication: BLOOD CHOLESTEROL INCREASED
     Dosage: 20 MG, UNK
  12. BENADRYL [Concomitant]
     Active Substance: DIPHENHYDRAMINE HYDROCHLORIDE
     Dosage: 12.5 MG, AS NEEDED (4 TIMES A DAY AS NEEDED)
  13. REVATIO [Suspect]
     Active Substance: SILDENAFIL CITRATE
     Indication: ACUTE RESPIRATORY FAILURE
     Dosage: 40 MG, 3X/DAY
     Dates: start: 20120228
  14. REVATIO [Suspect]
     Active Substance: SILDENAFIL CITRATE
     Dosage: 60 MG (20 MG X 3 TABLETS), 3X/DAY
     Route: 048
  15. FUROSEMIDE. [Concomitant]
     Active Substance: FUROSEMIDE
     Dosage: 40 MG, DAILY (A.M.)
  16. WARFARIN [Concomitant]
     Active Substance: WARFARIN
     Dosage: UNK, DAILY
     Dates: end: 20150623
  17. LOVASTATIN. [Concomitant]
     Active Substance: LOVASTATIN
     Dosage: 20 MG, DAILY (P.M.)
  18. TYLENOL [Concomitant]
     Active Substance: ACETAMINOPHEN
     Indication: NEUROPATHY PERIPHERAL
     Dosage: 325 MG, 1X/DAY(AT BED TIME)
  19. REVATIO [Suspect]
     Active Substance: SILDENAFIL CITRATE
     Indication: CHRONIC RESPIRATORY FAILURE
     Dosage: 60 MG, 3X/DAY
  20. POTASSIUM CHLORIDE. [Concomitant]
     Active Substance: POTASSIUM CHLORIDE
     Dosage: 20 MEQ, 2X/DAY
  21. FISH OIL [Concomitant]
     Active Substance: FISH OIL
     Dosage: 1000 IU, 2X/DAY
  22. MAGNESIUM CHLORIDE. [Concomitant]
     Active Substance: MAGNESIUM CHLORIDE
     Dosage: 250 MG, UNK
  23. REVATIO [Suspect]
     Active Substance: SILDENAFIL CITRATE
     Indication: PULMONARY HYPERTENSION
     Dosage: 20 MG, 3X/DAY, (MORNING, LUNCH, AND EVENING)
     Dates: start: 20120228
  24. REVATIO [Suspect]
     Active Substance: SILDENAFIL CITRATE
     Dosage: 60 MG, 3X/DAY (20 MG, 3 IN MORNING, 3 AT NOON, 3 AT NIGHT)
     Route: 048
  25. CALCIUM CITRATE + D [Concomitant]
     Active Substance: CALCIUM CITRATE\CHOLECALCIFEROL
     Dosage: UNK, DAILY (CALCIUM CITRATE 600 MG +COLECALCIFEROL 500 IU)
  26. PANTOPRAZOLE SODIUM. [Concomitant]
     Active Substance: PANTOPRAZOLE SODIUM
     Dosage: 20 MG, ALTERNATE DAY (20 MG, ON EVEN DAYS)
  27. REVATIO [Suspect]
     Active Substance: SILDENAFIL CITRATE
     Indication: PULMONARY ARTERIAL HYPERTENSION
     Dosage: 180 MG, DAILY (20 MG 9 TABLETS DAILY)
     Route: 048
  28. HYDRALAZINE HYDROCHLORIDE. [Concomitant]
     Active Substance: HYDRALAZINE HYDROCHLORIDE
     Indication: HYPERTENSION
     Dosage: 50 MG, DAILY

REACTIONS (16)
  - Pain in extremity [Not Recovered/Not Resolved]
  - Post procedural haemorrhage [Recovered/Resolved with Sequelae]
  - Peripheral swelling [Not Recovered/Not Resolved]
  - Condition aggravated [Not Recovered/Not Resolved]
  - Chronic obstructive pulmonary disease [Not Recovered/Not Resolved]
  - Prescribed overdose [Unknown]
  - Neuropathy peripheral [Unknown]
  - Pulmonary hypertension [Not Recovered/Not Resolved]
  - Product use issue [Unknown]
  - Ulcer haemorrhage [Recovered/Resolved]
  - Haematoma [Recovered/Resolved]
  - Dyspnoea [Not Recovered/Not Resolved]
  - Condition aggravated [Unknown]
  - Duodenal ulcer [Unknown]
  - Asthenia [Unknown]
  - Off label use [Unknown]

NARRATIVE: CASE EVENT DATE: 20120228
